FAERS Safety Report 17010252 (Version 1)
Quarter: 2019Q4

REPORT INFORMATION
  Report Type: Spontaneous
  Country: EG (occurrence: EG)
  Receive Date: 20191108
  Receipt Date: 20191108
  Transmission Date: 20200122
  Serious: Yes (Other)
  Sender: FDA-Public Use
  Company Number: EG-ROCHE-2456676

PATIENT
  Age: 64 Year
  Sex: Female

DRUGS (5)
  1. XELODA [Suspect]
     Active Substance: CAPECITABINE
     Indication: COLORECTAL CANCER
     Dosage: 8 ROUNDS OF XELOX
     Route: 048
     Dates: start: 20180801
  2. STIVARGA [Concomitant]
     Active Substance: REGORAFENIB
     Indication: COLORECTAL CANCER
  3. OXALIPLATIN. [Suspect]
     Active Substance: OXALIPLATIN
     Indication: COLORECTAL CANCER
     Dosage: 8 ROUNDS OF XELOX
     Route: 065
     Dates: start: 20180801
  4. FLUOROURACIL. [Concomitant]
     Active Substance: FLUOROURACIL
     Indication: COLORECTAL CANCER
     Dosage: ONE CYCLE OF 5FU
     Route: 065
     Dates: start: 201808
  5. CAMPTO [Suspect]
     Active Substance: IRINOTECAN
     Indication: COLORECTAL CANCER
     Route: 065

REACTIONS (7)
  - Metastases to liver [Unknown]
  - Metastases to perineum [Unknown]
  - Ill-defined disorder [Unknown]
  - Neuropathy peripheral [Unknown]
  - Metastases to lymph nodes [Unknown]
  - Emotional disorder [Unknown]
  - Malignant neoplasm progression [Unknown]
